FAERS Safety Report 7087389-2 (Version None)
Quarter: 2010Q4

REPORT INFORMATION
  Report Type: 
  Country: None (occurrence: None)
  Receive Date: 20101108
  Receipt Date: 20101028
  Transmission Date: 20110411
  Serious: Yes (Hospitalization)
  Sender: FDA-Public Use
  Company Number: US-BIOGENIDEC-2010BI038216

PATIENT
  Age: 60 Year
  Sex: Female

DRUGS (4)
  1. AVONEX [Suspect]
     Indication: MULTIPLE SCLEROSIS
     Route: 030
     Dates: start: 20040501
  2. AVONEX [Suspect]
     Route: 030
     Dates: start: 20050604, end: 20070928
  3. AVONEX [Suspect]
     Route: 030
     Dates: start: 20090319
  4. METOPROLOL [Concomitant]
     Indication: MYOCARDITIS
     Dates: end: 20100101

REACTIONS (5)
  - DEHYDRATION [None]
  - DIARRHOEA [None]
  - MYOCARDIAL INFARCTION [None]
  - VOMITING [None]
  - WEIGHT DECREASED [None]
